FAERS Safety Report 9369302 (Version 1)
Quarter: 2013Q2

REPORT INFORMATION
  Report Type: Spontaneous
  Country: US (occurrence: None)
  Receive Date: 20130625
  Receipt Date: 20130625
  Transmission Date: 20140414
  Serious: Yes (Hospitalization)
  Sender: FDA-Public Use
  Company Number: None

PATIENT
  Age: 66 Year
  Sex: Female

DRUGS (1)
  1. XELODA [Suspect]
     Indication: BREAST CANCER
     Dosage: BID FOR 14 DAYS OFF 7
     Route: 048
     Dates: start: 201208, end: 201306

REACTIONS (5)
  - Diarrhoea [None]
  - Dehydration [None]
  - Blood potassium decreased [None]
  - Aphagia [None]
  - Fluid intake reduced [None]
